FAERS Safety Report 15116329 (Version 1)
Quarter: 2018Q3

REPORT INFORMATION
  Report Type: Spontaneous
  Country: US (occurrence: US)
  Receive Date: 20180706
  Receipt Date: 20180706
  Transmission Date: 20181010
  Serious: Yes (Other)
  Sender: FDA-Public Use
  Company Number: US-PFIZER INC-2018270591

PATIENT
  Age: 67 Year
  Sex: Female

DRUGS (1)
  1. SUTENT [Suspect]
     Active Substance: SUNITINIB MALATE
     Dosage: 37.5MG, CYCLIC (ONE A DAY FOR 28 DAYS)

REACTIONS (3)
  - Second primary malignancy [Unknown]
  - Spindle cell sarcoma [Unknown]
  - Fibroma [Unknown]
